FAERS Safety Report 20417489 (Version 16)
Quarter: 2023Q1

REPORT INFORMATION
  Report Type: Spontaneous
  Country: IN (occurrence: IN)
  Receive Date: 20220202
  Receipt Date: 20230331
  Transmission Date: 20230417
  Serious: Yes (Other)
  Sender: FDA-Public Use
  Company Number: IN-PFIZER INC-2021207577

PATIENT
  Age: 66 Year
  Sex: Female

DRUGS (9)
  1. PALBOCICLIB [Suspect]
     Active Substance: PALBOCICLIB
     Indication: Breast cancer metastatic
     Dosage: 125 MG, 1X/DAY
     Route: 048
     Dates: start: 20200414
  2. PALBOCICLIB [Suspect]
     Active Substance: PALBOCICLIB
     Dosage: 125 MG, OD, 21/28 DAYS
     Route: 048
  3. PALBOCICLIB [Suspect]
     Active Substance: PALBOCICLIB
     Dosage: 125 MG, (ONCE DAILY 1-0-0 21D)
     Route: 048
     Dates: start: 20210619
  4. LETROZOLE [Concomitant]
     Active Substance: LETROZOLE
     Dosage: 2.5 MG, 1X/DAY, 1-0-0 30D
  5. SHELCAL [CALCIUM CARBONATE;COLECALCIFEROL] [Concomitant]
     Dosage: UNK, 1X/DAY ((500) 1-0-0 X 30 D)
  6. ULTRACET [Concomitant]
     Active Substance: ACETAMINOPHEN\TRAMADOL HYDROCHLORIDE
     Dosage: UNK, 2X/DAY
  7. AVER [Concomitant]
     Dosage: UNK, 1X/DAY (1-0-0) (30 D)
  8. LETROZOLE [Concomitant]
     Active Substance: LETROZOLE
     Indication: Breast cancer metastatic
     Dosage: UNK
  9. IDROFOS KIT [Concomitant]
     Dosage: UNK, 1X/DAY

REACTIONS (13)
  - Type 2 diabetes mellitus [Unknown]
  - Taste disorder [Unknown]
  - Haemoglobin decreased [Unknown]
  - White blood cell count decreased [Unknown]
  - Pain [Unknown]
  - Full blood count abnormal [Unknown]
  - Platelet count abnormal [Unknown]
  - Full blood count abnormal [Unknown]
  - Nerve block [Unknown]
  - Back pain [Unknown]
  - Nausea [Unknown]
  - Upper respiratory tract infection [Unknown]
  - Dyspnoea exertional [Unknown]

NARRATIVE: CASE EVENT DATE: 20210817
